FAERS Safety Report 16065526 (Version 2)
Quarter: 2019Q2

REPORT INFORMATION
  Report Type: Report from Study
  Country: None (occurrence: US)
  Receive Date: 20190313
  Receipt Date: 20190430
  Transmission Date: 20190711
  Serious: Yes (Hospitalization)
  Sender: FDA-Public Use
  Company Number: US-ABBVIE-19K-163-2700993-00

PATIENT
  Age: 22 Year
  Sex: Male
  Weight: 79.45 kg

DRUGS (2)
  1. HUMIRA [Suspect]
     Active Substance: ADALIMUMAB
     Indication: CROHN^S DISEASE
     Route: 058
     Dates: start: 20181213, end: 20190321
  2. HUMIRA [Suspect]
     Active Substance: ADALIMUMAB
     Indication: COLITIS ULCERATIVE

REACTIONS (11)
  - Discomfort [Unknown]
  - Iron deficiency anaemia [Unknown]
  - Therapeutic product effect incomplete [Recovering/Resolving]
  - Diarrhoea [Unknown]
  - Constipation [Unknown]
  - Hypoaesthesia [Unknown]
  - Allergy to animal [Unknown]
  - Condition aggravated [Unknown]
  - Obstruction gastric [Unknown]
  - Haematemesis [Unknown]
  - Vitamin D deficiency [Unknown]
